FAERS Safety Report 24947541 (Version 9)
Quarter: 2025Q4

REPORT INFORMATION
  Report Type: Report from Study
  Country: IL (occurrence: IL)
  Receive Date: 20250210
  Receipt Date: 20251108
  Transmission Date: 20260117
  Serious: Yes (Hospitalization, Other)
  Sender: RECORDATI
  Company Number: IL-ORPHANEU-2025000723

PATIENT
  Age: 66 Year
  Sex: Female

DRUGS (7)
  1. ISTURISA [Suspect]
     Active Substance: OSILODROSTAT PHOSPHATE
     Indication: Pituitary-dependent Cushing^s syndrome
     Dosage: 4 MILLIGRAM, Q12H
     Route: 048
     Dates: start: 20241204
  2. ISTURISA [Suspect]
     Active Substance: OSILODROSTAT PHOSPHATE
     Dosage: 3 MILLIGRAM, Q12H
     Route: 048
     Dates: end: 202503
  3. ISTURISA [Suspect]
     Active Substance: OSILODROSTAT PHOSPHATE
     Dosage: RESTARTED (UNKNOWN DOSING DETAILS)
     Route: 048
     Dates: end: 202504
  4. ISTURISA [Suspect]
     Active Substance: OSILODROSTAT PHOSPHATE
     Dosage: 6 MG PER DAY
     Route: 048
     Dates: start: 2025, end: 2025
  5. ISTURISA [Suspect]
     Active Substance: OSILODROSTAT PHOSPHATE
     Dosage: 3 MG PER DAY (DOSE REDUCED)
     Route: 048
     Dates: start: 2025, end: 2025
  6. ISTURISA [Suspect]
     Active Substance: OSILODROSTAT PHOSPHATE
     Dosage: 6 MG PER DAY (DOSE REDUCED)
     Route: 048
     Dates: start: 2025, end: 2025
  7. ISTURISA [Suspect]
     Active Substance: OSILODROSTAT PHOSPHATE
     Dosage: 3 MG, QD ON MORNING ONLY
     Route: 048
     Dates: start: 20250629

REACTIONS (12)
  - Haematological infection [Not Recovered/Not Resolved]
  - Urinary tract obstruction [Recovering/Resolving]
  - Pneumonia [Not Recovered/Not Resolved]
  - Blood potassium increased [Recovered/Resolved]
  - Urinary tract infection [Recovering/Resolving]
  - Hypotension [Not Recovered/Not Resolved]
  - Bone pain [Not Recovered/Not Resolved]
  - Myalgia [Not Recovered/Not Resolved]
  - Asthenia [Not Recovered/Not Resolved]
  - Malaise [Not Recovered/Not Resolved]
  - Fatigue [Not Recovered/Not Resolved]
  - Intentional product misuse [Recovered/Resolved]

NARRATIVE: CASE EVENT DATE: 20250425
